FAERS Safety Report 16700623 (Version 2)
Quarter: 2019Q3

REPORT INFORMATION
  Report Type: Spontaneous
  Country: PL (occurrence: PL)
  Receive Date: 20190814
  Receipt Date: 20190821
  Transmission Date: 20191004
  Serious: Yes (Hospitalization, Other)
  Sender: FDA-Public Use
  Company Number: PL-AUROBINDO-AUR-APL-2019-052834

PATIENT

DRUGS (1)
  1. VENLAFAXINE PROLONGED-RELEASE CAPSULE, HARD [Suspect]
     Active Substance: VENLAFAXINE HYDROCHLORIDE
     Indication: DEPRESSION
     Dosage: 150 MILLIGRAM, DAILY, INCREASING DOSAGE
     Route: 065

REACTIONS (3)
  - Angle closure glaucoma [Not Recovered/Not Resolved]
  - Glaucoma [Unknown]
  - Drug ineffective [Recovering/Resolving]
